FAERS Safety Report 6415745-1 (Version None)
Quarter: 2009Q4

REPORT INFORMATION
  Report Type: 
  Country: None (occurrence: None)
  Receive Date: 20091022
  Receipt Date: 20091015
  Transmission Date: 20100525
  Serious: Yes (Other)
  Sender: FDA-Public Use
  Company Number: 220010J09FRA

PATIENT
  Age: 8 Year
  Sex: Male
  Weight: 47.9 kg

DRUGS (1)
  1. SAIZEN [Suspect]
     Dosage: 1.2 MG, 1 IN 1 DAYS
     Dates: start: 20080101, end: 20091001

REACTIONS (2)
  - CRANIOPHARYNGIOMA [None]
  - NEOPLASM RECURRENCE [None]
